FAERS Safety Report 8415248-9 (Version None)
Quarter: 2012Q2

REPORT INFORMATION
  Report Type: 
  Country: None (occurrence: None)
  Receive Date: 20120606
  Receipt Date: 20120528
  Transmission Date: 20120825
  Serious: Yes (Hospitalization)
  Sender: FDA-Public Use
  Company Number: JP-VERTEX PHARMACEUTICALS INC.-AE-2012-007477

PATIENT
  Age: 51 Year
  Sex: Male

DRUGS (6)
  1. OLMESARTAN MEDOXOMIL [Concomitant]
     Route: 048
  2. PEGINTERFERON ALFA-2B [Concomitant]
     Route: 051
     Dates: start: 20120508, end: 20120522
  3. ZOLPIDEM [Concomitant]
     Route: 048
  4. TELAVIC (TELAPREVIR) [Suspect]
     Indication: HEPATITIS C
     Route: 048
     Dates: start: 20120508, end: 20120528
  5. RIBAVIRIN [Concomitant]
     Route: 048
     Dates: start: 20120508, end: 20120528
  6. AMLODIPINE [Concomitant]
     Route: 048

REACTIONS (2)
  - HYPERURICAEMIA [None]
  - BLOOD CREATINE PHOSPHOKINASE INCREASED [None]
